FAERS Safety Report 6355806-9 (Version None)
Quarter: 2009Q3

REPORT INFORMATION
  Report Type: 
  Country: None (occurrence: None)
  Receive Date: 20090915
  Receipt Date: 20070806
  Transmission Date: 20100115
  Serious: Yes (Other)
  Sender: FDA-Public Use
  Company Number: US-ASTRAZENECA-2006UW23793

PATIENT
  Age: 18966 Day
  Sex: Male

DRUGS (11)
  1. SEROQUEL [Suspect]
     Indication: MAJOR DEPRESSION
     Dosage: 200 MG - 600 MG DAILY
     Route: 048
     Dates: start: 20000530
  2. SEROQUEL [Suspect]
     Indication: SCHIZOPHRENIA
     Dosage: 200 MG - 600 MG DAILY
     Route: 048
     Dates: start: 20000530
  3. SEROQUEL [Suspect]
     Indication: HALLUCINATION, AUDITORY
     Dosage: 200 MG - 600 MG DAILY
     Route: 048
     Dates: start: 20000530
  4. SEROQUEL [Suspect]
     Indication: PARANOIA
     Dosage: 200 MG - 600 MG DAILY
     Route: 048
     Dates: start: 20000530
  5. ZYPREXA [Concomitant]
     Dates: start: 19970101, end: 19970101
  6. ZYPREXA [Concomitant]
     Dates: start: 19970825
  7. ESKALITH CR [Concomitant]
     Dosage: 900 MG - 1350 MG DAILY
     Dates: start: 20000530
  8. CELEXA [Concomitant]
     Dates: start: 20030519
  9. TRAZODONE [Concomitant]
     Dosage: STRENGTH 50 MG, 100 MG  DOSE 50 MG - 200 MG DAILY
     Dates: start: 19970825
  10. TRILAFON [Concomitant]
     Dosage: 4 MG- 24 MG DAILY
     Route: 048
     Dates: start: 20000530
  11. PROZAC [Concomitant]
     Dosage: STRENGTH 20 MG  DOSE 20 MG - 80 MG DAILY
     Dates: start: 19970310

REACTIONS (4)
  - DIABETES MELLITUS [None]
  - DIABETIC NEPHROPATHY [None]
  - NEUROPATHY PERIPHERAL [None]
  - TYPE 1 DIABETES MELLITUS [None]
